FAERS Safety Report 6623824-9 (Version None)
Quarter: 2010Q1

REPORT INFORMATION
  Report Type: 
  Country: None (occurrence: None)
  Receive Date: 20100310
  Receipt Date: 20100225
  Transmission Date: 20100710
  Serious: Yes (Other)
  Sender: FDA-Public Use
  Company Number: PHHY2010CN05411

PATIENT
  Sex: Male

DRUGS (4)
  1. MIACALCIN [Suspect]
     Indication: BONE PAIN
     Dosage: UNK
  2. MIACALCIN [Suspect]
     Indication: METASTASES TO BONE
  3. MIACALCIN [Suspect]
     Indication: METASTASES TO LIVER
  4. VOLTAREN [Suspect]
     Indication: BONE PAIN
     Dosage: 2 TABLETS DAILY

REACTIONS (2)
  - CONCOMITANT DISEASE PROGRESSION [None]
  - HEPATIC NEOPLASM [None]
